FAERS Safety Report 5892201-0 (Version None)
Quarter: 2008Q3

REPORT INFORMATION
  Report Type: 
  Country: None (occurrence: None)
  Receive Date: 20080922
  Receipt Date: 20080908
  Transmission Date: 20090109
  Serious: Yes (Other)
  Sender: FDA-Public Use
  Company Number: GB-GENENTECH-267598

PATIENT

DRUGS (1)
  1. LUCENTIS [Suspect]
     Indication: MACULAR DEGENERATION

REACTIONS (3)
  - CEREBROVASCULAR ACCIDENT [None]
  - HYPERTENSION [None]
  - TACHYARRHYTHMIA [None]
